FAERS Safety Report 6307763-9 (Version None)
Quarter: 2009Q3

REPORT INFORMATION
  Report Type: 
  Country: None (occurrence: None)
  Receive Date: 20090812
  Receipt Date: 20090812
  Transmission Date: 20100115
  Serious: Yes (Other)
  Sender: FDA-Public Use
  Company Number: None

PATIENT
  Age: 105 Year
  Sex: Female
  Weight: 51.7101 kg

DRUGS (1)
  1. ARIMIDEX [Suspect]
     Indication: BREAST CANCER
     Dates: start: 20090805, end: 20090808

REACTIONS (8)
  - CONFUSIONAL STATE [None]
  - HYPERSOMNIA [None]
  - HYPERVIGILANCE [None]
  - JUDGEMENT IMPAIRED [None]
  - LOGORRHOEA [None]
  - PERSONALITY CHANGE [None]
  - SLEEP DISORDER [None]
  - THINKING ABNORMAL [None]
